FAERS Safety Report 23695979 (Version 1)
Quarter: 2024Q2

REPORT INFORMATION
  Report Type: Spontaneous
  Country: GR (occurrence: GR)
  Receive Date: 20240402
  Receipt Date: 20240402
  Transmission Date: 20240716
  Serious: Yes (Other)
  Sender: FDA-Public Use
  Company Number: None

PATIENT
  Age: 28 Year
  Sex: Male
  Weight: 90 kg

DRUGS (6)
  1. REBLOZYL [Suspect]
     Active Substance: LUSPATERCEPT-AAMT
     Indication: Thalassaemia
     Route: 058
     Dates: start: 20220411
  2. FERRIPROX [Concomitant]
     Active Substance: DEFERIPRONE
     Indication: Iron overload
     Dosage: APPROXIMATELY 85MG/ KG BODY WEIGHT
  3. DESFERAL [Concomitant]
     Active Substance: DEFEROXAMINE MESYLATE
     Indication: Iron overload
     Dosage: 2 GRAM ABOUT 4 TIMES PER WEEK
  4. ASPIRIN [Concomitant]
     Active Substance: ASPIRIN
     Indication: Thrombocytosis
  5. CHOLECALCIFEROL [Concomitant]
     Active Substance: CHOLECALCIFEROL
     Indication: Thalassaemia
  6. FOLIC ACID [Concomitant]
     Active Substance: FOLIC ACID
     Indication: Thalassaemia

REACTIONS (1)
  - Superficial vein thrombosis [Recovering/Resolving]

NARRATIVE: CASE EVENT DATE: 20240122
